FAERS Safety Report 6082242-5 (Version None)
Quarter: 2009Q1

REPORT INFORMATION
  Report Type: 
  Country: None (occurrence: None)
  Receive Date: 20090218
  Receipt Date: 20090211
  Transmission Date: 20090719
  Serious: Yes (Other)
  Sender: FDA-Public Use
  Company Number: US-BIOGENIDEC-2009BI001591

PATIENT
  Sex: Female

DRUGS (3)
  1. TYSABRI [Suspect]
     Indication: MULTIPLE SCLEROSIS
     Route: 042
     Dates: start: 20050224, end: 20050224
  2. TYSABRI [Suspect]
     Route: 042
     Dates: start: 20081230, end: 20090127
  3. TYSABRI [Suspect]
     Route: 042
     Dates: start: 20090203

REACTIONS (3)
  - BREAST CANCER [None]
  - FATIGUE [None]
  - MULTIPLE SCLEROSIS RELAPSE [None]
